FAERS Safety Report 20964911 (Version 1)
Quarter: 2022Q2

REPORT INFORMATION
  Report Type: Spontaneous
  Country: CN (occurrence: CN)
  Receive Date: 20220616
  Receipt Date: 20220616
  Transmission Date: 20220721
  Serious: Yes (Hospitalization)
  Sender: FDA-Public Use
  Company Number: None

PATIENT
  Age: 49 Year
  Sex: Female
  Weight: 52 kg

DRUGS (6)
  1. CYCLOPHOSPHAMIDE [Suspect]
     Active Substance: CYCLOPHOSPHAMIDE
     Indication: Invasive ductal breast carcinoma
     Dosage: INJECTION, CYCLOPHOSPHAMIDE (0.91 G) + 0.9% SODIUM CHLORIDE (500 ML)
     Route: 041
     Dates: start: 20220516, end: 20220516
  2. CYCLOPHOSPHAMIDE [Suspect]
     Active Substance: CYCLOPHOSPHAMIDE
     Indication: Hormone receptor positive HER2 negative breast cancer
  3. SODIUM CHLORIDE [Suspect]
     Active Substance: SODIUM CHLORIDE
     Indication: Medication dilution
     Dosage: INJECTION, CYCLOPHOSPHAMIDE (0.91 G) + 0.9% SODIUM CHLORIDE (500 ML)
     Route: 041
     Dates: start: 20220516, end: 20220516
  4. DEXTROSE MONOHYDRATE [Suspect]
     Active Substance: DEXTROSE MONOHYDRATE
     Indication: Medication dilution
     Dosage: INJECTION, PIRARUBICIN HYDROCHLORIDE (75 MG) + 5% GLUCOSE (250 ML)
     Route: 041
     Dates: start: 20220516, end: 20220516
  5. PIRARUBICIN HYDROCHLORIDE [Suspect]
     Active Substance: PIRARUBICIN HYDROCHLORIDE
     Indication: Invasive ductal breast carcinoma
     Dosage: PIRARUBICIN HYDROCHLORIDE (75 MG) + 5% GLUCOSE (250 ML)
     Route: 041
     Dates: start: 20220516, end: 20220516
  6. PIRARUBICIN HYDROCHLORIDE [Suspect]
     Active Substance: PIRARUBICIN HYDROCHLORIDE
     Indication: Hormone receptor positive HER2 negative breast cancer

REACTIONS (2)
  - White blood cell count decreased [Recovering/Resolving]
  - Neutrophil count decreased [Recovering/Resolving]

NARRATIVE: CASE EVENT DATE: 20220526
